FAERS Safety Report 8911884 (Version 2)
Quarter: 2012Q4

REPORT INFORMATION
  Report Type: 
  Country: FR (occurrence: FR)
  Receive Date: 20121116
  Receipt Date: 20121123
  Transmission Date: 20130627
  Serious: Yes (Life-Threatening, Other)
  Sender: FDA-Public Use
  Company Number: FR-JNJFOC-20121105169

PATIENT
  Age: 68 Year
  Sex: Male
  Weight: 76 kg

DRUGS (6)
  1. REMICADE [Suspect]
     Indication: COLITIS ULCERATIVE
     Dosage: 400 mg
     Route: 042
     Dates: start: 20121029
  2. IMUREL [Concomitant]
     Route: 048
  3. CONTRAMAL [Concomitant]
     Route: 048
  4. CORTANCYL [Concomitant]
     Route: 048
  5. INEXIUM [Concomitant]
     Route: 048
  6. PENTASA [Concomitant]
     Route: 048

REACTIONS (6)
  - Ventricular arrhythmia [Recovered/Resolved]
  - Loss of consciousness [Unknown]
  - Acute coronary syndrome [Unknown]
  - Cardiomyopathy [Unknown]
  - Malaise [Recovered/Resolved]
  - Infusion related reaction [Recovered/Resolved]
